FAERS Safety Report 13506033 (Version 1)
Quarter: 2017Q2

REPORT INFORMATION
  Report Type: Spontaneous
  Country: US (occurrence: US)
  Receive Date: 20170502
  Receipt Date: 20170502
  Transmission Date: 20170830
  Serious: No
  Sender: FDA-Public Use
  Company Number: US-ROCHE-1508624

PATIENT
  Sex: Female

DRUGS (1)
  1. AVASTIN [Suspect]
     Active Substance: BEVACIZUMAB
     Indication: OVARIAN CANCER STAGE IV
     Route: 065
     Dates: start: 201411, end: 201411

REACTIONS (3)
  - Dementia [Not Recovered/Not Resolved]
  - Epistaxis [Recovered/Resolved]
  - Headache [Recovered/Resolved]
